FAERS Safety Report 5231239-3 (Version None)
Quarter: 2007Q1

REPORT INFORMATION
  Report Type: 
  Country: None (occurrence: None)
  Receive Date: 20070202
  Receipt Date: 20070119
  Transmission Date: 20070707
  Serious: Yes (Death)
  Sender: FDA-Public Use
  Company Number: T200601110

PATIENT
  Age: 32 Year
  Sex: Male

DRUGS (13)
  1. LORCET-HD [Suspect]
     Indication: PAIN
     Dosage: ORAL
     Route: 048
     Dates: start: 20030101
  2. RESTORIL [Suspect]
     Indication: PAIN
     Dates: start: 20030101
  3. LORTAB [Suspect]
     Indication: PAIN
     Dates: start: 20030101
  4. TALWIN NX(NALOXONE HDROCHLORIDE, PENTAZOCINE HYDROCHLORIDE) [Suspect]
     Indication: PAIN
     Dates: start: 20030101
  5. AMBIEN [Suspect]
     Indication: BACK PAIN
     Dates: start: 20030101, end: 20040920
  6. NORCO [Suspect]
     Indication: PAIN
     Dates: start: 20030101
  7. VICODIN [Suspect]
     Indication: PAIN
     Dates: start: 20030101
  8. TEMAZEPAM [Suspect]
     Indication: PAIN
     Dates: start: 20030101
  9. DALMANE [Suspect]
     Indication: PAIN
     Dates: start: 20030101
  10. LIDODERM [Suspect]
     Indication: PAIN
     Dates: start: 20030101
  11. LIDOCAINE [Suspect]
     Indication: PAIN
     Dates: start: 20030101
  12. ZONEGRAN [Concomitant]
  13. PROPONAPAT [Concomitant]

REACTIONS (29)
  - ABNORMAL DREAMS [None]
  - AMNESIA [None]
  - ANXIETY [None]
  - BASE EXCESS INCREASED [None]
  - BLOOD ALCOHOL INCREASED [None]
  - BLOOD BICARBONATE DECREASED [None]
  - BLOOD CALCIUM DECREASED [None]
  - BLOOD CHLORIDE DECREASED [None]
  - BLOOD CREATININE INCREASED [None]
  - BLOOD GLUCOSE INCREASED [None]
  - BLOOD POTASSIUM DECREASED [None]
  - BLOOD PRESSURE DECREASED [None]
  - BODY TEMPERATURE DECREASED [None]
  - BRADYCARDIA [None]
  - BRAIN OEDEMA [None]
  - COMPLETED SUICIDE [None]
  - CONFUSIONAL STATE [None]
  - DEPRESSION [None]
  - FALL [None]
  - GUN SHOT WOUND [None]
  - HALLUCINATION [None]
  - HEART RATE INCREASED [None]
  - MOOD ALTERED [None]
  - NERVOUSNESS [None]
  - PCO2 DECREASED [None]
  - PULMONARY OEDEMA [None]
  - PUPIL FIXED [None]
  - SUICIDAL IDEATION [None]
  - VISUAL DISTURBANCE [None]
